FAERS Safety Report 9384428 (Version 1)
Quarter: 2013Q3

REPORT INFORMATION
  Report Type: Spontaneous
  Country: US (occurrence: US)
  Receive Date: 20130705
  Receipt Date: 20130705
  Transmission Date: 20140515
  Serious: No
  Sender: FDA-Public Use
  Company Number: US-009507513-1307USA000723

PATIENT
  Age: 57 Year
  Sex: Female

DRUGS (3)
  1. DULERA [Suspect]
     Indication: ASTHMA
     Dosage: 2 PUFFS IN THE MORNING/2 PUFFS IN THE EVENING
     Route: 055
     Dates: start: 201206
  2. SINGULAIR [Concomitant]
     Route: 048
  3. XOPENEX [Concomitant]

REACTIONS (4)
  - Chest discomfort [Recovered/Resolved]
  - Dyspnoea [Recovered/Resolved]
  - Product container issue [Unknown]
  - Underdose [Unknown]
